FAERS Safety Report 7955087-6 (Version None)
Quarter: 2011Q4

REPORT INFORMATION
  Report Type: 
  Country: None (occurrence: None)
  Receive Date: 20111202
  Receipt Date: 20111128
  Transmission Date: 20120403
  Serious: Yes (Other)
  Sender: FDA-Public Use
  Company Number: US-BAYER-2011-115137

PATIENT
  Sex: Female

DRUGS (1)
  1. BETASERON [Suspect]
     Dosage: UNK
     Dates: start: 20100101

REACTIONS (5)
  - CATARACT [None]
  - FATIGUE [None]
  - DEPRESSION [None]
  - IRITIS [None]
  - PSORIASIS [None]
